FAERS Safety Report 7241486-7 (Version None)
Quarter: 2011Q1

REPORT INFORMATION
  Report Type: 
  Country: None (occurrence: None)
  Receive Date: 20110124
  Receipt Date: 20110113
  Transmission Date: 20110831
  Serious: Yes (Hospitalization)
  Sender: FDA-Public Use
  Company Number: US-ASTRAZENECA-2011SE02441

PATIENT
  Age: 43 Year
  Sex: Male
  Weight: 61.1 kg

DRUGS (6)
  1. SEROQUEL [Suspect]
     Route: 048
     Dates: start: 20101114, end: 20101211
  2. WARFARIN [Suspect]
     Dates: start: 20101212, end: 20101212
  3. SEROQUEL [Suspect]
     Route: 048
     Dates: start: 20101229
  4. ATIVAN [Concomitant]
     Indication: ANXIETY
     Route: 048
     Dates: start: 20091001, end: 20101214
  5. SEROQUEL [Suspect]
     Route: 048
     Dates: start: 20101212, end: 20101212
  6. SEROQUEL [Suspect]
     Route: 048
     Dates: start: 20101214, end: 20101228

REACTIONS (3)
  - SUICIDE ATTEMPT [None]
  - MULTIPLE DRUG OVERDOSE INTENTIONAL [None]
  - SCHIZOPHRENIA [None]
